FAERS Safety Report 16827471 (Version 3)
Quarter: 2019Q4

REPORT INFORMATION
  Report Type: Report from Study
  Country: None (occurrence: BE)
  Receive Date: 20190919
  Receipt Date: 20191206
  Transmission Date: 20200122
  Serious: Yes (Hospitalization)
  Sender: FDA-Public Use
  Company Number: BE-ABBVIE-19K-013-2848477-00

PATIENT
  Sex: Male

DRUGS (9)
  1. DUODOPA [Suspect]
     Active Substance: CARBIDOPA\LEVODOPA
     Dosage: MD=7.5ML?CD=3ML/HR DURING 16HRS?ED=1.5ML
     Route: 050
     Dates: start: 20190702, end: 20190705
  2. DUODOPA [Suspect]
     Active Substance: CARBIDOPA\LEVODOPA
     Dosage: MD=6ML, CD=2.7ML/HR DURING 16HRS, ED=1.5ML
     Route: 050
     Dates: start: 20191202
  3. PANTOMED [Concomitant]
     Indication: PRODUCT USED FOR UNKNOWN INDICATION
  4. MOVICOL [Concomitant]
     Active Substance: POLYETHYLENE GLYCOL 3350\POTASSIUM CHLORIDE\SODIUM BICARBONATE\SODIUM CHLORIDE
     Indication: PRODUCT USED FOR UNKNOWN INDICATION
  5. XALATAN [Concomitant]
     Active Substance: LATANOPROST
     Indication: PRODUCT USED FOR UNKNOWN INDICATION
     Dosage: FORM STRENGTH: 50 MICROGRAM/ML
  6. VESICARE [Concomitant]
     Active Substance: SOLIFENACIN SUCCINATE
     Indication: PRODUCT USED FOR UNKNOWN INDICATION
  7. DUODOPA [Suspect]
     Active Substance: CARBIDOPA\LEVODOPA
     Indication: PARKINSON^S DISEASE
     Dosage: MD=6.2ML?CD=3ML/HR DURING 16HRS?ED=1.5ML
     Route: 050
     Dates: start: 20190520, end: 20190702
  8. DUODOPA [Suspect]
     Active Substance: CARBIDOPA\LEVODOPA
     Dosage: MD=6.5ML?CD=2.8ML/HR DURING 16HRS?ED=1.5ML
     Route: 050
     Dates: start: 20190705, end: 20190708
  9. DUODOPA [Suspect]
     Active Substance: CARBIDOPA\LEVODOPA
     Dosage: MD=6ML?CD=2.9ML/HR DURING 16HRS?ED=1.5ML
     Route: 050
     Dates: start: 20190708, end: 20191202

REACTIONS (13)
  - Dementia [Unknown]
  - Fall [Unknown]
  - Hypokinesia [Unknown]
  - Visual impairment [Unknown]
  - Cognitive disorder [Not Recovered/Not Resolved]
  - Balance disorder [Not Recovered/Not Resolved]
  - Musculoskeletal disorder [Recovering/Resolving]
  - Depression [Unknown]
  - Freezing phenomenon [Recovering/Resolving]
  - Loss of personal independence in daily activities [Unknown]
  - Gait disturbance [Recovering/Resolving]
  - Dyskinesia [Unknown]
  - Negative thoughts [Unknown]

NARRATIVE: CASE EVENT DATE: 2019
